FAERS Safety Report 6762345-X (Version None)
Quarter: 2010Q2

REPORT INFORMATION
  Report Type: 
  Country: None (occurrence: None)
  Receive Date: 20100609
  Receipt Date: 20100527
  Transmission Date: 20101027
  Serious: No
  Sender: FDA-Public Use
  Company Number: US-B.I. PHARMACEUTICALS,INC./RIDGEFIELD-2010-BP-06029BP

PATIENT
  Sex: Female

DRUGS (8)
  1. SPIRIVA [Suspect]
     Indication: CHRONIC OBSTRUCTIVE PULMONARY DISEASE
     Dosage: 18 MCG
     Route: 055
     Dates: start: 20091101
  2. PLAVIX [Concomitant]
     Indication: CARDIAC DISORDER
     Dosage: 75 MG
  3. OMEPRAZOLE [Concomitant]
     Indication: GASTRIC DISORDER
     Dosage: 40 MG
  4. SIMVASTATIN [Concomitant]
     Indication: CARDIAC DISORDER
     Dosage: 10 MG
  5. SPIRONOLACTONE [Concomitant]
     Indication: CARDIAC DISORDER
     Dosage: 25 MG
  6. FEXOFEN [Concomitant]
     Indication: SEASONAL ALLERGY
     Dosage: 180 MG
  7. LORAZEPAM [Concomitant]
     Indication: NERVOUSNESS
     Dosage: 5 MG
  8. INSULIN PUMP [Concomitant]
     Indication: DIABETES MELLITUS

REACTIONS (2)
  - ERYTHEMA [None]
  - RASH [None]
